FAERS Safety Report 13260545 (Version 2)
Quarter: 2017Q1

REPORT INFORMATION
  Report Type: Spontaneous
  Country: US (occurrence: US)
  Receive Date: 20170222
  Receipt Date: 20170222
  Transmission Date: 20170428
  Serious: No
  Sender: FDA-Public Use
  Company Number: US-BAYER-2017-034176

PATIENT
  Age: 4 Year
  Sex: Female

DRUGS (1)
  1. CLARITIN [Suspect]
     Active Substance: LORATADINE
     Dosage: 4 DF, ONCE
     Route: 048
     Dates: start: 20170220, end: 20170220

REACTIONS (2)
  - Failure of child resistant mechanism for pharmaceutical product [None]
  - Accidental exposure to product by child [Recovered/Resolved]

NARRATIVE: CASE EVENT DATE: 20170220
